FAERS Safety Report 9346910 (Version 2)
Quarter: 2013Q2

REPORT INFORMATION
  Report Type: Report from Study
  Country: FR (occurrence: FR)
  Receive Date: 20130613
  Receipt Date: 20130624
  Transmission Date: 20140414
  Serious: Yes (Death, Life-Threatening, Hospitalization, Other)
  Sender: FDA-Public Use
  Company Number: PHHO2013FR007766

PATIENT
  Age: 60 Year
  Sex: Female

DRUGS (3)
  1. EVEROLIMUS [Suspect]
     Indication: SQUAMOUS CELL CARCINOMA OF HEAD AND NECK
     Dosage: 50 MG, UNK
     Dates: start: 20120104, end: 20120104
  2. PACLITAXEL [Concomitant]
     Indication: SQUAMOUS CELL CARCINOMA OF HEAD AND NECK
     Dosage: 60 MG/M2, UNK
     Dates: start: 20120104, end: 20120104
  3. CARBOPLATIN [Concomitant]
     Indication: SQUAMOUS CELL CARCINOMA OF HEAD AND NECK
     Dosage: 2.00 AUC MG/M2
     Dates: start: 20120104, end: 20120104

REACTIONS (2)
  - Cerebral ischaemia [Fatal]
  - Tumour haemorrhage [Recovered/Resolved with Sequelae]
